FAERS Safety Report 10847175 (Version 1)
Quarter: 2015Q1

REPORT INFORMATION
  Report Type: Spontaneous
  Country: HR (occurrence: HR)
  Receive Date: 20150220
  Receipt Date: 20150220
  Transmission Date: 20150721
  Serious: Yes (Hospitalization, Other)
  Sender: FDA-Public Use
  Company Number: HR-ELI_LILLY_AND_COMPANY-HR201502003850

PATIENT
  Age: 47 Year
  Sex: Male

DRUGS (1)
  1. ZYPADHERA [Suspect]
     Active Substance: OLANZAPINE PAMOATE
     Indication: SCHIZOPHRENIA
     Dosage: 405 MG, MONTHLY (1/M)
     Route: 030
     Dates: start: 20141106, end: 20141106

REACTIONS (11)
  - Disorientation [Recovering/Resolving]
  - White blood cell count increased [Unknown]
  - Blood glucose increased [Unknown]
  - Gamma-glutamyltransferase increased [Unknown]
  - Agitation [Recovering/Resolving]
  - Amnesia [Recovering/Resolving]
  - Confusional state [Recovering/Resolving]
  - Blood pressure increased [Recovered/Resolved]
  - Delirium [Recovering/Resolving]
  - Apathy [Recovering/Resolving]
  - Consciousness fluctuating [Recovering/Resolving]

NARRATIVE: CASE EVENT DATE: 20141106
